FAERS Safety Report 5965255-0 (Version None)
Quarter: 2008Q4

REPORT INFORMATION
  Report Type: 
  Country: None (occurrence: None)
  Receive Date: 20081124
  Receipt Date: 20081124
  Transmission Date: 20090506
  Serious: Yes (Life-Threatening, Hospitalization, Disabling)
  Sender: FDA-Public Use
  Company Number: None

PATIENT
  Age: 80 Year
  Sex: Male
  Weight: 77.1115 kg

DRUGS (1)
  1. DIGITEK 125MCG BERTK [Suspect]
     Indication: ATRIAL FIBRILLATION
     Dosage: 125MCG  BID PO
     Route: 048
     Dates: start: 20060101, end: 20080916

REACTIONS (8)
  - DIZZINESS [None]
  - HEART RATE DECREASED [None]
  - HYPERHIDROSIS [None]
  - POLLAKIURIA [None]
  - PRODUCT QUALITY ISSUE [None]
  - PULSE ABSENT [None]
  - SKIN DISCOLOURATION [None]
  - UNRESPONSIVE TO STIMULI [None]
